FAERS Safety Report 5358930-2 (Version None)
Quarter: 2007Q2

REPORT INFORMATION
  Report Type: 
  Country: None (occurrence: None)
  Receive Date: 20070615
  Receipt Date: 20070605
  Transmission Date: 20071010
  Serious: Yes (Death, Hospitalization)
  Sender: FDA-Public Use
  Company Number: B0474977A

PATIENT
  Age: 77 Year
  Sex: Male

DRUGS (13)
  1. GEAVIR [Suspect]
     Indication: HERPES ZOSTER
     Dosage: 650MGD PER DAY
     Route: 042
     Dates: start: 20070112, end: 20070112
  2. VALTREX [Suspect]
     Indication: HERPES ZOSTER
     Dosage: 500MG UNKNOWN
     Route: 048
     Dates: start: 20070110, end: 20070111
  3. KLEXANE [Concomitant]
     Route: 042
  4. EFFORTIL [Concomitant]
     Dosage: 5MG UNKNOWN
     Route: 065
  5. NATRIUM BICARBONATE [Concomitant]
     Dosage: 1G UNKNOWN
     Route: 065
  6. VENTOLIN (NEBULISER) [Concomitant]
  7. THEO-DUR [Concomitant]
     Dosage: 200MG UNKNOWN
  8. DIFLUCAN [Concomitant]
     Route: 065
  9. TAZOCIN [Concomitant]
     Route: 042
  10. ATROVENT [Concomitant]
  11. NEXIUM [Concomitant]
     Dosage: 40MG UNKNOWN
  12. MEROPENEM [Concomitant]
  13. BETAMETASONE [Concomitant]

REACTIONS (6)
  - BACTERIAL INFECTION [None]
  - CONFUSIONAL STATE [None]
  - DEPRESSED LEVEL OF CONSCIOUSNESS [None]
  - HALLUCINATION [None]
  - MUSCLE SPASTICITY [None]
  - RESTLESSNESS [None]
